FAERS Safety Report 19619053 (Version 1)
Quarter: 2021Q3

REPORT INFORMATION
  Report Type: Spontaneous
  Country: US (occurrence: US)
  Receive Date: 20210727
  Receipt Date: 20210727
  Transmission Date: 20211014
  Serious: No
  Sender: FDA-Public Use
  Company Number: US-ROCHE-2768102

PATIENT
  Age: 62 Year
  Sex: Male

DRUGS (2)
  1. XELODA [Suspect]
     Active Substance: CAPECITABINE
     Indication: PRODUCT USED FOR UNKNOWN INDICATION
     Route: 048
     Dates: start: 20210201
  2. XELODA [Suspect]
     Active Substance: CAPECITABINE
     Dosage: 2000 AM AND 1500 PM
     Route: 048
     Dates: start: 202101

REACTIONS (5)
  - Fatigue [Recovered/Resolved]
  - Vomiting [Unknown]
  - Palpitations [Recovered/Resolved]
  - Nausea [Recovered/Resolved]
  - Decreased appetite [Not Recovered/Not Resolved]

NARRATIVE: CASE EVENT DATE: 20210203
